FAERS Safety Report 25063193 (Version 8)
Quarter: 2025Q2

REPORT INFORMATION
  Report Type: Spontaneous
  Country: US (occurrence: US)
  Receive Date: 20250311
  Receipt Date: 20250527
  Transmission Date: 20250717
  Serious: No
  Sender: KARYOPHARM THERAPEUTICS
  Company Number: US-KARYOPHARM-2025KPT000247

PATIENT

DRUGS (19)
  1. XPOVIO [Suspect]
     Active Substance: SELINEXOR
     Indication: Plasma cell myeloma
     Route: 048
     Dates: start: 20250227, end: 20250319
  2. XPOVIO [Suspect]
     Active Substance: SELINEXOR
     Route: 065
     Dates: start: 20250326, end: 20250409
  3. XPOVIO [Suspect]
     Active Substance: SELINEXOR
     Route: 048
     Dates: start: 2025, end: 20250521
  4. METHADONE [Concomitant]
     Active Substance: METHADONE HYDROCHLORIDE
  5. GABAPENTIN [Concomitant]
     Active Substance: GABAPENTIN
  6. PREVIDENT 5000 BOOST [Concomitant]
  7. DEXAMETHASONE [Concomitant]
     Active Substance: DEXAMETHASONE
  8. BACTRIM [Concomitant]
     Active Substance: SULFAMETHOXAZOLE\TRIMETHOPRIM
  9. VALACYCLOVIR [Concomitant]
     Active Substance: VALACYCLOVIR HYDROCHLORIDE
  10. DILAUDID [Concomitant]
     Active Substance: HYDROMORPHONE HYDROCHLORIDE
  11. NIVESTYM [Concomitant]
     Active Substance: FILGRASTIM-AAFI
  12. LISINOPRIL [Concomitant]
     Active Substance: LISINOPRIL
  13. ZOFRAN [Concomitant]
     Active Substance: ONDANSETRON HYDROCHLORIDE
  14. ZOLEDRONIC [Concomitant]
     Active Substance: ZOLEDRONIC ACID
  15. POMALYST [Concomitant]
     Active Substance: POMALIDOMIDE
  16. ELIQUIS [Concomitant]
     Active Substance: APIXABAN
  17. LASIX [Concomitant]
     Active Substance: FUROSEMIDE
  18. FLOMAX [Concomitant]
     Active Substance: TAMSULOSIN HYDROCHLORIDE
  19. ROBAXIN [Concomitant]
     Active Substance: METHOCARBAMOL

REACTIONS (9)
  - Muscle spasms [Recovering/Resolving]
  - Peripheral swelling [Not Recovered/Not Resolved]
  - Chest discomfort [Not Recovered/Not Resolved]
  - Hiccups [Not Recovered/Not Resolved]
  - Gastrointestinal disorder [Unknown]
  - Neuropathy peripheral [Not Recovered/Not Resolved]
  - Dyspnoea [Not Recovered/Not Resolved]
  - Fatigue [Recovering/Resolving]
  - Platelet count decreased [Not Recovered/Not Resolved]

NARRATIVE: CASE EVENT DATE: 20250101
